FAERS Safety Report 8378923-0 (Version None)
Quarter: 2012Q2

REPORT INFORMATION
  Report Type: 
  Country: None (occurrence: None)
  Receive Date: 20120523
  Receipt Date: 20120518
  Transmission Date: 20120825
  Serious: No
  Sender: FDA-Public Use
  Company Number: US-PFIZER INC-2012090622

PATIENT
  Sex: Female

DRUGS (1)
  1. LYRICA [Suspect]
     Indication: FIBROMYALGIA
     Dosage: 150 MG, UNK
     Dates: end: 20120401

REACTIONS (6)
  - NASOPHARYNGITIS [None]
  - NAUSEA [None]
  - HOT FLUSH [None]
  - INFLUENZA [None]
  - BLADDER PAIN [None]
  - DEPRESSED MOOD [None]
